FAERS Safety Report 25574601 (Version 3)
Quarter: 2025Q3

REPORT INFORMATION
  Report Type: Spontaneous
  Country: JP (occurrence: JP)
  Receive Date: 20250718
  Receipt Date: 20250923
  Transmission Date: 20251020
  Serious: Yes (Life-Threatening, Hospitalization)
  Sender: ASTELLAS
  Company Number: JP-ASTELLAS-2025-AER-036771

PATIENT
  Age: 9 Decade
  Sex: Male
  Weight: 70 kg

DRUGS (7)
  1. PADCEV [Suspect]
     Active Substance: ENFORTUMAB VEDOTIN-EJFV
     Indication: Malignant neoplasm of renal pelvis
     Route: 042
     Dates: start: 20250619, end: 20250703
  2. RESTAMIN KOWA CREAM [Concomitant]
     Indication: Pruritus
     Route: 065
     Dates: start: 20250626
  3. Magmitt tablet 330 [Concomitant]
     Indication: Nausea
     Route: 065
     Dates: start: 20250626
  4. Rabeprazole tablet 10 [Concomitant]
     Indication: Product used for unknown indication
     Route: 065
     Dates: start: 20250703
  5. METOCLOPRAMIDE tablet 5 [Concomitant]
     Indication: Nausea
     Route: 065
     Dates: start: 20250703
  6. METOCLOPRAMIDE tablet 5 [Concomitant]
     Indication: Nausea
  7. METOCLOPRAMIDE tablet 5 [Concomitant]
     Indication: Decreased appetite

REACTIONS (4)
  - Febrile neutropenia [Recovered/Resolved]
  - Skin disorder [Recovered/Resolved]
  - Dyspepsia [Recovered/Resolved]
  - Pruritus [Not Recovered/Not Resolved]

NARRATIVE: CASE EVENT DATE: 20250626
